FAERS Safety Report 18466408 (Version 1)
Quarter: 2020Q4

REPORT INFORMATION
  Report Type: Spontaneous
  Country: US (occurrence: US)
  Receive Date: 20201105
  Receipt Date: 20201105
  Transmission Date: 20210114
  Serious: No
  Sender: FDA-Public Use
  Company Number: US-UNITED THERAPEUTICS-UNT-2020-016690

PATIENT

DRUGS (1)
  1. UNITUXIN [Suspect]
     Active Substance: DINUTUXIMAB
     Indication: NEUROBLASTOMA RECURRENT
     Dosage: UNK, CYCLICAL
     Route: 041

REACTIONS (4)
  - Device programming error [Unknown]
  - Off label use [Unknown]
  - Accidental overdose [Unknown]
  - Incorrect drug administration rate [Unknown]
